FAERS Safety Report 4967383-5 (Version None)
Quarter: 2006Q2

REPORT INFORMATION
  Report Type: 
  Country: None (occurrence: None)
  Receive Date: 20060404
  Receipt Date: 20060324
  Transmission Date: 20061013
  Serious: Yes (Life-Threatening)
  Sender: FDA-Public Use
  Company Number: 2006RL000105

PATIENT
  Age: 45 Year
  Sex: Female

DRUGS (2)
  1. OMACOR [Suspect]
     Dosage: 1000 MG; QD; PO
     Route: 048
     Dates: start: 20060303, end: 20060317
  2. ACYCLOVIR [Concomitant]

REACTIONS (4)
  - ANXIETY [None]
  - DYSPNOEA [None]
  - FEELING HOT [None]
  - HEART RATE INCREASED [None]
